FAERS Safety Report 23302039 (Version 1)
Quarter: 2023Q4

REPORT INFORMATION
  Report Type: Spontaneous
  Country: US (occurrence: None)
  Receive Date: 20231214
  Receipt Date: 20231214
  Transmission Date: 20240110
  Serious: Yes (Other)
  Sender: FDA-Public Use
  Company Number: None

PATIENT
  Age: 60 Year
  Sex: Female

DRUGS (11)
  1. AMBRISENTAN [Suspect]
     Active Substance: AMBRISENTAN
     Indication: Pulmonary arterial hypertension
     Dosage: 10MG QD ORAL?
     Route: 048
     Dates: start: 20220208
  2. TADALAFIL [Concomitant]
  3. SELEXIPAG [Concomitant]
     Active Substance: SELEXIPAG
  4. FUROSEMIDE [Concomitant]
  5. POTASIUM CHLORIDE [Concomitant]
  6. NORTRIPTYLINE [Concomitant]
  7. CLONAZEPAM [Concomitant]
  8. EXCEDRIN [Concomitant]
  9. ESTRADIOL PATCH [Concomitant]
  10. MEDROCYPROGESTERONE [Concomitant]
  11. FAMOTIDINE [Concomitant]

REACTIONS (3)
  - Peripheral swelling [None]
  - Dyspnoea [None]
  - Chest pain [None]

NARRATIVE: CASE EVENT DATE: 20231107
